FAERS Safety Report 10005377 (Version 2)
Quarter: 2014Q2

REPORT INFORMATION
  Report Type: Report from Study
  Country: US (occurrence: US)
  Receive Date: 20140312
  Receipt Date: 20140508
  Transmission Date: 20141212
  Serious: Yes (Hospitalization)
  Sender: FDA-Public Use
  Company Number: US-ABBVIE-14P-163-1210036-00

PATIENT
  Age: 62 Year
  Sex: Female

DRUGS (9)
  1. HUMIRA [Suspect]
     Indication: CROHN^S DISEASE
     Route: 058
     Dates: start: 20140208, end: 20140208
  2. HUMIRA [Suspect]
     Route: 058
  3. HUMIRA [Suspect]
     Dosage: ON WEDNESDAYS
     Route: 058
  4. PREDNISONE [Concomitant]
     Indication: CROHN^S DISEASE
     Route: 048
  5. FLECAINIDE [Concomitant]
     Indication: ARRHYTHMIA
     Route: 048
  6. WARFARIN [Concomitant]
     Indication: ARRHYTHMIA
     Route: 048
  7. METOPROLOL [Concomitant]
     Indication: HYPERTENSION
     Route: 048
  8. BARACLUDE [Concomitant]
     Indication: LIVER DISORDER
     Route: 048
  9. ZANTAC [Concomitant]
     Indication: DYSPEPSIA
     Dosage: DAILY
     Route: 048

REACTIONS (3)
  - Heart rate increased [Recovered/Resolved]
  - Palpitations [Recovered/Resolved]
  - Chest pain [Unknown]
